FAERS Safety Report 9553652 (Version 1)
Quarter: 2013Q3

REPORT INFORMATION
  Report Type: Spontaneous
  Country: BR (occurrence: BR)
  Receive Date: 20130925
  Receipt Date: 20130925
  Transmission Date: 20140515
  Serious: Yes (Other)
  Sender: FDA-Public Use
  Company Number: BR-ABBVIE-13P-020-1150915-00

PATIENT
  Age: 26 Year
  Sex: Female

DRUGS (1)
  1. HUMIRA [Suspect]
     Indication: SPONDYLITIS
     Dates: start: 201306

REACTIONS (5)
  - Loss of consciousness [Recovered/Resolved]
  - Injection site reaction [Unknown]
  - Rash [Unknown]
  - Urticaria [Unknown]
  - Cyanosis [Unknown]
